FAERS Safety Report 10561767 (Version 2)
Quarter: 2014Q4

REPORT INFORMATION
  Report Type: Spontaneous
  Country: HU (occurrence: HU)
  Receive Date: 20141103
  Receipt Date: 20141113
  Transmission Date: 20150529
  Serious: Yes (Hospitalization)
  Sender: FDA-Public Use
  Company Number: HU-AMGEN-HUNSP2014084151

PATIENT
  Age: 42 Year
  Sex: Male

DRUGS (8)
  1. CLEXANE [Suspect]
     Active Substance: ENOXAPARIN SODIUM
     Indication: PRODUCT USED FOR UNKNOWN INDICATION
     Dosage: 0.4 ML, UNK
     Route: 065
     Dates: start: 20141009, end: 20141009
  2. 5 FLUORO URACIL [Suspect]
     Active Substance: FLUOROURACIL
     Indication: RECTAL CANCER METASTATIC
     Dosage: UNK
     Route: 041
     Dates: start: 20141009, end: 20141010
  3. 5 FLUORO URACIL [Suspect]
     Active Substance: FLUOROURACIL
     Dosage: 540 MG, DILUTED IN 20 ML SALINE
     Route: 065
     Dates: start: 20141009, end: 20141009
  4. LEUCOVORIN-TEVA [Suspect]
     Active Substance: LEUCOVORIN
     Indication: RECTAL CANCER METASTATIC
     Dosage: UNK
     Route: 065
     Dates: start: 20141009, end: 20141019
  5. APRANAX                            /00256202/ [Suspect]
     Active Substance: NAPROXEN
     Indication: PRODUCT USED FOR UNKNOWN INDICATION
     Dosage: 550 MG, UNK
     Route: 048
     Dates: start: 20141009, end: 20141009
  6. VECTIBIX [Suspect]
     Active Substance: PANITUMUMAB
     Indication: RECTAL CANCER METASTATIC
     Dosage: 198 MG, A TOTAL DOSE OF 396 MG DILUTED IN 100 ML SALINE
     Route: 042
     Dates: start: 20141009, end: 20141009
  7. OXALIPLATIN TEVA [Suspect]
     Active Substance: OXALIPLATIN
     Indication: RECTAL CANCER METASTATIC
     Dosage: 114 MG, DILUTED IN 500 ML GLUCOSE SOLUTION
     Route: 042
     Dates: start: 20141009, end: 20141009
  8. VECTIBIX [Suspect]
     Active Substance: PANITUMUMAB
     Dosage: 198 MG, A TOTAL DOSE OF 396 MG DILUTED IN 100 ML SALINE
     Route: 042
     Dates: start: 20141009, end: 20141009

REACTIONS (1)
  - Thrombocytopenia [Recovering/Resolving]

NARRATIVE: CASE EVENT DATE: 20141009
